FAERS Safety Report 12890079 (Version 2)
Quarter: 2017Q4

REPORT INFORMATION
  Report Type: Spontaneous
  Country: IT (occurrence: IT)
  Receive Date: 20161027
  Receipt Date: 20171009
  Transmission Date: 20180320
  Serious: Yes (Hospitalization, Other)
  Sender: FDA-Public Use
  Company Number: IT-NOVOPROD-515772

PATIENT
  Age: 65 Year
  Sex: Female

DRUGS (15)
  1. SIMVASTATINA [Concomitant]
     Active Substance: SIMVASTATIN
     Dosage: 20 MG
     Route: 065
  2. LASIX [Concomitant]
     Active Substance: FUROSEMIDE
     Dosage: 1/2 TABET X 2
     Route: 065
  3. VALPRESSION [Concomitant]
     Active Substance: VALSARTAN
     Dosage: UNK
  4. CARDIOASPIRIN [Concomitant]
     Active Substance: ASPIRIN
     Dosage: UNK
  5. ACTRAPID [Suspect]
     Active Substance: INSULIN HUMAN
     Indication: TYPE 2 DIABETES MELLITUS
     Dosage: 6IU
     Route: 058
  6. ACTRAPID [Suspect]
     Active Substance: INSULIN HUMAN
     Dosage: 12 IU, QD
     Route: 058
  7. DOXAZOSINA                         /00639301/ [Concomitant]
     Active Substance: DOXAZOSIN\DOXAZOSIN MESYLATE
     Dosage: 1/2 TABLET+1
  8. PLAVIX [Concomitant]
     Active Substance: CLOPIDOGREL BISULFATE
     Dosage: 1 TABLET
     Route: 065
  9. AMLODIPINE BESILATE [Concomitant]
     Active Substance: AMLODIPINE BESYLATE
     Dosage: 10 MG
  10. NITROGLYCERIN. [Concomitant]
     Active Substance: NITROGLYCERIN
     Dosage: 15 PUTS AT 12:00 HOURS
     Route: 065
  11. LANTUS [Suspect]
     Active Substance: INSULIN GLARGINE
     Indication: TYPE 2 DIABETES MELLITUS
     Dosage: 14 IU
     Route: 058
  12. PANTORC [Concomitant]
     Active Substance: PANTOPRAZOLE SODIUM
     Dosage: 1 TABLET
     Route: 065
  13. LORAZEPAM. [Concomitant]
     Active Substance: LORAZEPAM
     Dosage: 1 TABLET
  14. CATAPRES-TTS [Concomitant]
     Active Substance: CLONIDINE
     Dosage: 1 ON SUNDAY
     Route: 065
  15. NEBIVOLOLO [Concomitant]
     Active Substance: NEBIVOLOL
     Dosage: 1 TABLET
     Route: 065

REACTIONS (4)
  - Hypoglycaemia [Recovered/Resolved]
  - Pain in extremity [Unknown]
  - Syncope [Recovered/Resolved]
  - Hypothermia [Recovered/Resolved]

NARRATIVE: CASE EVENT DATE: 20160325
